FAERS Safety Report 8191891-X (Version None)
Quarter: 2012Q1

REPORT INFORMATION
  Report Type: 
  Country: None (occurrence: None)
  Receive Date: 20120307
  Receipt Date: 20120227
  Transmission Date: 20120608
  Serious: Yes (Hospitalization)
  Sender: FDA-Public Use
  Company Number: PHHY2012FR015985

PATIENT
  Sex: Female

DRUGS (7)
  1. VOLTAREN [Interacting]
     Indication: PAIN
     Route: 048
     Dates: start: 20120113, end: 20120117
  2. ASPIRIN [Suspect]
     Dates: start: 20120127
  3. AMLODIPINE BESYLATE [Concomitant]
     Dosage: 1 DF, QD
     Route: 048
  4. DITROPAN [Concomitant]
     Dosage: 1 DF, BID
     Route: 048
  5. DOGMATIL [Concomitant]
     Dosage: 1 DF, QD
  6. ASPIRIN [Suspect]
     Dosage: 1 DF, QD
     Dates: end: 20120117
  7. RABEPRAZOLE SODIUM [Concomitant]
     Dosage: 1 DF, QD
     Route: 048

REACTIONS (3)
  - HAEMATEMESIS [None]
  - HAEMATOMA [None]
  - VOMITING [None]
